FAERS Safety Report 21154629 (Version 1)
Quarter: 2022Q3

REPORT INFORMATION
  Report Type: Spontaneous
  Country: CH (occurrence: CH)
  Receive Date: 20220801
  Receipt Date: 20220801
  Transmission Date: 20221027
  Serious: Yes (Other)
  Sender: FDA-Public Use
  Company Number: CH-TEVA-2022-CH-2059585

PATIENT
  Age: 26 Year
  Sex: Female

DRUGS (2)
  1. COPAXONE [Suspect]
     Active Substance: GLATIRAMER ACETATE
     Indication: Multiple sclerosis
     Dosage: FREQUENCY TIME: 1 WEEKS, DURATION: 780 DAYS
     Route: 058
     Dates: start: 20170410, end: 20190530
  2. COPAXONE [Suspect]
     Active Substance: GLATIRAMER ACETATE
     Dosage: DURATION: 315 DAYS
     Route: 065
     Dates: start: 20200115, end: 20201125

REACTIONS (3)
  - Caesarean section [Unknown]
  - Maternal exposure during pregnancy [Unknown]
  - Normal newborn [Unknown]

NARRATIVE: CASE EVENT DATE: 20190101
